FAERS Safety Report 5988715-5 (Version None)
Quarter: 2008Q4

REPORT INFORMATION
  Report Type: 
  Country: None (occurrence: None)
  Receive Date: 20081210
  Receipt Date: 20081202
  Transmission Date: 20090506
  Serious: Yes (Other)
  Sender: FDA-Public Use
  Company Number: PHEH2008US10446

PATIENT
  Sex: Male

DRUGS (3)
  1. TASIGNA [Suspect]
     Indication: MASTOCYTOSIS
     Dosage: 400 MG, BID
     Dates: start: 20081030, end: 20081102
  2. TASIGNA [Suspect]
     Dosage: 200 MG, QD
     Dates: start: 20081105
  3. TASIGNA [Suspect]
     Dosage: 200 MG, BID
     Dates: start: 20081112

REACTIONS (9)
  - DYSARTHRIA [None]
  - HYPERSENSITIVITY [None]
  - LOCAL SWELLING [None]
  - OEDEMA [None]
  - PRURITUS [None]
  - RASH [None]
  - SWELLING FACE [None]
  - TRYPTASE INCREASED [None]
  - VISION BLURRED [None]
